FAERS Safety Report 8301487-4 (Version None)
Quarter: 2012Q2

REPORT INFORMATION
  Report Type: 
  Country: None (occurrence: None)
  Receive Date: 20120420
  Receipt Date: 20120413
  Transmission Date: 20120825
  Serious: Yes (Other)
  Sender: FDA-Public Use
  Company Number: PHHY2012CA026777

PATIENT
  Sex: Female

DRUGS (5)
  1. ASPIRIN [Concomitant]
  2. LEVOTHYROXINE SODIUM [Concomitant]
  3. MIRTAZAPINE [Concomitant]
  4. GILENYA [Suspect]
     Indication: RELAPSING-REMITTING MULTIPLE SCLEROSIS
     Dosage: 0.5 MG, QD
     Route: 048
     Dates: start: 20120109, end: 20120410
  5. LORAZEPAM [Concomitant]

REACTIONS (6)
  - NASOPHARYNGITIS [None]
  - OROPHARYNGEAL PAIN [None]
  - DRUG ABUSE [None]
  - PALPITATIONS [None]
  - COUGH [None]
  - SNEEZING [None]
